FAERS Safety Report 7203504-1 (Version None)
Quarter: 2010Q4

REPORT INFORMATION
  Report Type: 
  Country: None (occurrence: None)
  Receive Date: 20101230
  Receipt Date: 20101221
  Transmission Date: 20110411
  Serious: Yes (Other)
  Sender: FDA-Public Use
  Company Number: US-JNJFOC-20100906524

PATIENT
  Sex: Female

DRUGS (4)
  1. LEVAQUIN [Suspect]
     Indication: SINUSITIS
     Route: 065
  2. PREDNISONE [Suspect]
     Indication: ILL-DEFINED DISORDER
     Route: 065
  3. LORTAB [Concomitant]
     Indication: ILL-DEFINED DISORDER
     Route: 065
  4. CORTICOSTEROID [Concomitant]
     Indication: ILL-DEFINED DISORDER
     Route: 065

REACTIONS (7)
  - ARTHRALGIA [None]
  - BONE INFARCTION [None]
  - CONTRAINDICATION TO MEDICAL TREATMENT [None]
  - OSTEONECROSIS [None]
  - PAIN IN EXTREMITY [None]
  - TENDON PAIN [None]
  - TENDONITIS [None]
